FAERS Safety Report 19410708 (Version 1)
Quarter: 2021Q2

REPORT INFORMATION
  Report Type: Spontaneous
  Country: US (occurrence: US)
  Receive Date: 20210612
  Receipt Date: 20210612
  Transmission Date: 20210717
  Serious: No
  Sender: FDA-Public Use
  Company Number: None

PATIENT
  Age: 22 Year
  Sex: Female

DRUGS (1)
  1. HUMIRA [Suspect]
     Active Substance: ADALIMUMAB
     Indication: COLITIS
     Dosage: ?          OTHER DOSE:40MG/0.8ML;?
     Route: 058
     Dates: start: 202104

REACTIONS (1)
  - Injection site pain [None]

NARRATIVE: CASE EVENT DATE: 202106
